FAERS Safety Report 17108706 (Version 1)
Quarter: 2019Q4

REPORT INFORMATION
  Report Type: Spontaneous
  Country: US (occurrence: US)
  Receive Date: 20191203
  Receipt Date: 20191203
  Transmission Date: 20200122
  Serious: Yes (Hospitalization)
  Sender: FDA-Public Use
  Company Number: US-TEVA-2019-US-1146539

PATIENT
  Age: 36 Year
  Sex: Male

DRUGS (1)
  1. FENTANYL. [Suspect]
     Active Substance: FENTANYL
     Indication: OVERDOSE
     Route: 045

REACTIONS (9)
  - Confusional state [Unknown]
  - Cerebral ischaemia [Unknown]
  - Overdose [Unknown]
  - Retinal ischaemia [Unknown]
  - Retinopathy [Unknown]
  - Anterograde amnesia [Recovering/Resolving]
  - Ophthalmoplegia [Recovered/Resolved]
  - Amaurosis [Unknown]
  - Eyelid ptosis [Unknown]
